FAERS Safety Report 8292403-2 (Version None)
Quarter: 2012Q2

REPORT INFORMATION
  Report Type: 
  Country: None (occurrence: None)
  Receive Date: 20120417
  Receipt Date: 20120411
  Transmission Date: 20120825
  Serious: Yes (Other)
  Sender: FDA-Public Use
  Company Number: US-GILEAD-2012-0052389

PATIENT
  Sex: Female

DRUGS (3)
  1. LETAIRIS [Suspect]
     Indication: PULMONARY HYPERTENSION
     Dosage: UNK
     Route: 048
     Dates: start: 20120306
  2. REVATIO [Concomitant]
  3. LETAIRIS [Suspect]
     Indication: UNEVALUABLE EVENT

REACTIONS (3)
  - DIARRHOEA [None]
  - DIPLOPIA [None]
  - ABDOMINAL PAIN UPPER [None]
